FAERS Safety Report 6740357-X (Version None)
Quarter: 2010Q2

REPORT INFORMATION
  Report Type: 
  Country: None (occurrence: None)
  Receive Date: 20100521
  Receipt Date: 20100323
  Transmission Date: 20101027
  Serious: Yes (Life-Threatening)
  Sender: FDA-Public Use
  Company Number: 503865

PATIENT
  Age: 42 Year
  Sex: Female

DRUGS (2)
  1. METHOTREXATE [Suspect]
     Dosage: 1250 MG    INTRAVENOUS
     Route: 042
     Dates: start: 20090618
  2. ANASTROZOLE [Concomitant]

REACTIONS (3)
  - DEEP VEIN THROMBOSIS [None]
  - ENCEPHALITIS [None]
  - STAPHYLOCOCCAL SEPSIS [None]
